FAERS Safety Report 10905647 (Version 1)
Quarter: 2015Q1

REPORT INFORMATION
  Report Type: Spontaneous
  Country: None (occurrence: US)
  Receive Date: 20150311
  Receipt Date: 20150311
  Transmission Date: 20150721
  Serious: No
  Sender: FDA-Public Use
  Company Number: US-EISAI MEDICAL RESEARCH-EC-2015-004556

PATIENT
  Sex: Female

DRUGS (12)
  1. BANZEL [Suspect]
     Active Substance: RUFINAMIDE
     Route: 048
     Dates: start: 20140907, end: 20140911
  2. SABRIL [Suspect]
     Active Substance: VIGABATRIN
     Dosage: 1325 MG
     Route: 048
     Dates: start: 20140907, end: 201409
  3. SABRIL [Suspect]
     Active Substance: VIGABATRIN
     Route: 048
     Dates: start: 2014, end: 20140906
  4. BANZEL [Suspect]
     Active Substance: RUFINAMIDE
     Route: 048
     Dates: start: 201409, end: 20140906
  5. BANZEL [Suspect]
     Active Substance: RUFINAMIDE
     Route: 048
     Dates: start: 20140912, end: 20140918
  6. BACLOFEN. [Concomitant]
     Active Substance: BACLOFEN
  7. BANZEL [Suspect]
     Active Substance: RUFINAMIDE
     Indication: GENERALISED TONIC-CLONIC SEIZURE
     Route: 048
     Dates: end: 2014
  8. SABRIL [Suspect]
     Active Substance: VIGABATRIN
     Indication: GENERALISED TONIC-CLONIC SEIZURE
     Dosage: UNKNOWN
     Route: 048
     Dates: end: 2014
  9. SABRIL [Suspect]
     Active Substance: VIGABATRIN
     Route: 048
     Dates: start: 201409, end: 201409
  10. SABRIL [Suspect]
     Active Substance: VIGABATRIN
     Route: 048
     Dates: start: 201409
  11. LAMICTAL [Concomitant]
     Active Substance: LAMOTRIGINE
  12. BANZEL [Suspect]
     Active Substance: RUFINAMIDE
     Dosage: UNKNOWN
     Route: 048
     Dates: start: 2014, end: 2014

REACTIONS (2)
  - Urinary retention [Recovered/Resolved]
  - Somnolence [Recovered/Resolved]

NARRATIVE: CASE EVENT DATE: 2014
